FAERS Safety Report 7994367-5 (Version None)
Quarter: 2011Q4

REPORT INFORMATION
  Report Type: 
  Country: None (occurrence: None)
  Receive Date: 20111220
  Receipt Date: 20111209
  Transmission Date: 20120403
  Serious: Yes (Hospitalization)
  Sender: FDA-Public Use
  Company Number: US-MYLANLABS-2011S1025342

PATIENT
  Age: 84 Year
  Sex: Female

DRUGS (3)
  1. LISINOPRIL [Concomitant]
     Indication: BLOOD PRESSURE INCREASED
  2. PERPHENAZINE AND AMITRIPTYLINE HYDROCHLORIDE TABLETS, USP [Suspect]
     Indication: DEPRESSION
     Route: 048
     Dates: end: 20111125
  3. PERPHENAZINE AND AMITRIPTYLINE HYDROCHLORIDE TABLETS, USP [Suspect]
     Route: 048
     Dates: start: 20111207

REACTIONS (9)
  - BLOOD PRESSURE FLUCTUATION [None]
  - DYSARTHRIA [None]
  - TREMOR [None]
  - DRUG WITHDRAWAL SYNDROME [None]
  - DYSPHAGIA [None]
  - SPEECH DISORDER [None]
  - EYE MOVEMENT DISORDER [None]
  - TINNITUS [None]
  - PYREXIA [None]
